FAERS Safety Report 19478905 (Version 1)
Quarter: 2021Q3

REPORT INFORMATION
  Report Type: Spontaneous
  Country: PT (occurrence: PT)
  Receive Date: 20210701
  Receipt Date: 20210701
  Transmission Date: 20211014
  Serious: Yes (Other)
  Sender: FDA-Public Use
  Company Number: PT-AUROBINDO-AUR-APL-2021-027567

PATIENT
  Age: 57 Year
  Sex: Female
  Weight: 84 kg

DRUGS (1)
  1. OXALIPLATIN. [Suspect]
     Active Substance: OXALIPLATIN
     Indication: PRODUCT USED FOR UNKNOWN INDICATION
     Dosage: 244 MILLIGRAM, CYCLICAL
     Route: 042

REACTIONS (3)
  - Respiratory distress [Recovered/Resolved]
  - Rash [Recovered/Resolved]
  - Stridor [Recovered/Resolved]

NARRATIVE: CASE EVENT DATE: 20200221
